FAERS Safety Report 20653187 (Version 2)
Quarter: 2022Q2

REPORT INFORMATION
  Report Type: Spontaneous
  Country: US (occurrence: US)
  Receive Date: 20220330
  Receipt Date: 20220411
  Transmission Date: 20220720
  Serious: No
  Sender: FDA-Public Use
  Company Number: US-BRISTOL-MYERS SQUIBB COMPANY-2022-011774

PATIENT
  Age: 49 Year
  Sex: Female

DRUGS (2)
  1. SPRYCEL [Suspect]
     Active Substance: DASATINIB
     Indication: Chronic myeloid leukaemia
     Dosage: FREQUENCY: EVERY OTHER DAY
     Route: 048
     Dates: start: 20220105
  2. SPRYCEL [Suspect]
     Active Substance: DASATINIB
     Dosage: FREQUENCY: EVERY OTHER DAY
     Route: 048
     Dates: start: 202201

REACTIONS (4)
  - Headache [Unknown]
  - Off label use [Unknown]
  - Alopecia [Unknown]
  - Rash [Unknown]
